FAERS Safety Report 5139489-1 (Version None)
Quarter: 2006Q4

REPORT INFORMATION
  Report Type: 
  Country: None (occurrence: None)
  Receive Date: 20061026
  Receipt Date: 20061026
  Transmission Date: 20070319
  Serious: Yes (Death)
  Sender: FDA-Public Use
  Company Number: None

PATIENT
  Age: 68 Year
  Sex: Male

DRUGS (2)
  1. VELCADE [Suspect]
     Indication: DIFFUSE LARGE B-CELL LYMPHOMA
     Dosage: IV DAY 1+4 OF 21 DAY CYCLE
     Route: 042
  2. R-CHOP [Suspect]
     Indication: DIFFUSE LARGE B-CELL LYMPHOMA
     Dosage: DAY 1 OF 21 DAY CYCLE

REACTIONS (4)
  - HAEMORRHAGE INTRACRANIAL [None]
  - HEPATIC FAILURE [None]
  - HEPATITIS [None]
  - PNEUMONIA [None]
